FAERS Safety Report 7612146-5 (Version None)
Quarter: 2011Q3

REPORT INFORMATION
  Report Type: 
  Country: None (occurrence: None)
  Receive Date: 20110715
  Receipt Date: 20110706
  Transmission Date: 20111222
  Serious: Yes (Life-Threatening)
  Sender: FDA-Public Use
  Company Number: FR-ABBOTT-11P-056-0836533-00

PATIENT
  Age: 55 Year
  Sex: Male

DRUGS (4)
  1. LOPERAMIDE HCL [Concomitant]
     Indication: DIARRHOEA
     Dates: start: 20060328
  2. QUESTRAN [Concomitant]
     Indication: HYPERCHOLESTEROLAEMIA
     Dates: start: 20060823
  3. HUMIRA [Suspect]
     Indication: CROHN'S DISEASE
     Route: 058
  4. NOCTAMIDE [Concomitant]
     Indication: INSOMNIA
     Dates: start: 20080701

REACTIONS (1)
  - ACUTE LEUKAEMIA [None]
